FAERS Safety Report 15998523 (Version 1)
Quarter: 2019Q1

REPORT INFORMATION
  Report Type: Spontaneous
  Country: TW (occurrence: TW)
  Receive Date: 20190223
  Receipt Date: 20190223
  Transmission Date: 20190418
  Serious: Yes (Hospitalization)
  Sender: FDA-Public Use
  Company Number: TW-INDICUS PHARMA-000573

PATIENT
  Age: 21 Year
  Sex: Female

DRUGS (2)
  1. METFORMIN [Suspect]
     Active Substance: METFORMIN HYDROCHLORIDE
     Indication: POLYCYSTIC OVARIES
  2. DROSPIRENONE [Suspect]
     Active Substance: DROSPIRENONE
     Indication: POLYCYSTIC OVARIES

REACTIONS (1)
  - Psychotic disorder [Recovered/Resolved]
